FAERS Safety Report 23531473 (Version 2)
Quarter: 2024Q1

REPORT INFORMATION
  Report Type: Spontaneous
  Country: DE (occurrence: DE)
  Receive Date: 20240216
  Receipt Date: 20240226
  Transmission Date: 20240410
  Serious: Yes (Hospitalization, Other)
  Sender: FDA-Public Use
  Company Number: DE-ZAMBON-202400372DEU

PATIENT
  Age: 71 Year
  Sex: Male
  Weight: 70 kg

DRUGS (14)
  1. EZETIMIBE [Suspect]
     Active Substance: EZETIMIBE
     Indication: Product used for unknown indication
     Dosage: 10 MILLIGRAM
     Route: 048
  2. EZETIMIBE [Suspect]
     Active Substance: EZETIMIBE
     Dosage: 20 MILLIGRAM, SINGLE
     Route: 048
     Dates: start: 20240204, end: 20240204
  3. CARBIDOPA\LEVODOPA [Suspect]
     Active Substance: CARBIDOPA\LEVODOPA
     Indication: Product used for unknown indication
     Dosage: 1 DOSAGE FORM
     Route: 048
  4. CARBIDOPA\LEVODOPA [Suspect]
     Active Substance: CARBIDOPA\LEVODOPA
     Dosage: 2 DOSAGE FORM, SINGLE
     Route: 048
     Dates: start: 20240204, end: 20240204
  5. SITAGLIPTIN [Suspect]
     Active Substance: SITAGLIPTIN
     Indication: Product used for unknown indication
     Dosage: 50 MILLIGRAM
     Route: 048
  6. SITAGLIPTIN [Suspect]
     Active Substance: SITAGLIPTIN
     Dosage: 100 MILLIGRAM, SINGLE
     Route: 048
     Dates: start: 20240204, end: 20240204
  7. RIVAROXABAN [Suspect]
     Active Substance: RIVAROXABAN
     Indication: Product used for unknown indication
     Dosage: 20 MILLIGRAM
     Route: 048
  8. RIVAROXABAN [Suspect]
     Active Substance: RIVAROXABAN
     Dosage: 40 MILLIGRAM, SINGLE
     Route: 048
     Dates: start: 20240204, end: 20240204
  9. XADAGO [Suspect]
     Active Substance: SAFINAMIDE MESYLATE
     Indication: Product used for unknown indication
     Dosage: 100 MILLIGRAM, SINGLE
     Route: 048
     Dates: start: 20240204, end: 20240204
  10. XADAGO [Suspect]
     Active Substance: SAFINAMIDE MESYLATE
     Dosage: 50 MILLIGRAM
     Route: 048
  11. METFORMIN [Suspect]
     Active Substance: METFORMIN HYDROCHLORIDE
     Indication: Product used for unknown indication
     Dosage: 1700 MILLIGRAM, SINGLE
     Route: 048
     Dates: start: 20240204, end: 20240204
  12. METFORMIN [Suspect]
     Active Substance: METFORMIN HYDROCHLORIDE
     Dosage: 850 MILLIGRAM
     Route: 048
  13. PRUCALOPRIDE [Suspect]
     Active Substance: PRUCALOPRIDE
     Indication: Product used for unknown indication
     Dosage: 2 MILLIGRAM
     Route: 048
  14. PRUCALOPRIDE [Suspect]
     Active Substance: PRUCALOPRIDE
     Dosage: 4 MILLIGRAM, SINGLE
     Route: 048
     Dates: start: 20240204, end: 20240204

REACTIONS (5)
  - Delirium tremens [Recovering/Resolving]
  - Hallucination [Recovering/Resolving]
  - Tachycardia [Recovering/Resolving]
  - Disorientation [Recovering/Resolving]
  - Duplicate therapy error [Unknown]

NARRATIVE: CASE EVENT DATE: 20240204
